FAERS Safety Report 18198372 (Version 1)
Quarter: 2020Q3

REPORT INFORMATION
  Report Type: Spontaneous
  Country: US (occurrence: US)
  Receive Date: 20200826
  Receipt Date: 20200826
  Transmission Date: 20201103
  Serious: No
  Sender: FDA-Public Use
  Company Number: US-SA-2020SA228194

PATIENT

DRUGS (3)
  1. DUPIXENT [Suspect]
     Active Substance: DUPILUMAB
     Indication: DERMATITIS ATOPIC
     Dosage: 300 MG, QOW
     Route: 058
     Dates: start: 202003
  2. DOXYCYCLINE. [Suspect]
     Active Substance: DOXYCYCLINE
     Route: 065
  3. NYSTATIN. [Suspect]
     Active Substance: NYSTATIN
     Indication: RASH

REACTIONS (1)
  - Rash [Unknown]
